FAERS Safety Report 7224940 (Version 5)
Quarter: 2013Q1

REPORT INFORMATION
  Report Type: Spontaneous
  Country: US (occurrence: US)
  Receive Date: 20091221
  Receipt Date: 20130328
  Transmission Date: 20140127
  Serious: No
  Sender: FDA-Public Use
  Company Number: US-ASTRAZENECA-2009SE05872

PATIENT
  Age: 62 Year
  Sex: Female

DRUGS (8)
  1. NEXIUM [Suspect]
     Route: 048
  2. CRESTOR [Suspect]
     Route: 048
  3. CRESTOR [Suspect]
     Dosage: GENERIC
     Route: 048
  4. CYMBALTA [Concomitant]
  5. LISINOPRIL [Concomitant]
  6. METFORMIN [Concomitant]
  7. FENOFIBRATE [Concomitant]
  8. INDAPAMIDE [Concomitant]

REACTIONS (7)
  - Gastrooesophageal reflux disease [Unknown]
  - Ear infection [Unknown]
  - Pharyngitis [Unknown]
  - Blood cholesterol increased [Unknown]
  - Nausea [Unknown]
  - Abdominal pain upper [Unknown]
  - Drug ineffective [Unknown]
